FAERS Safety Report 5337388-3 (Version None)
Quarter: 2007Q2

REPORT INFORMATION
  Report Type: 
  Country: None (occurrence: None)
  Receive Date: 20070529
  Receipt Date: 20070517
  Transmission Date: 20071010
  Serious: Yes (Other)
  Sender: FDA-Public Use
  Company Number: BR-PFIZER INC-2007041165

PATIENT
  Sex: Female

DRUGS (4)
  1. LIPITOR [Suspect]
     Indication: DYSLIPIDAEMIA
     Route: 048
     Dates: start: 20040101, end: 20061201
  2. ALL OTHER THERAPEUTIC PRODUCTS [Concomitant]
     Route: 048
  3. VITAMIN B COMPLEX CAP [Concomitant]
     Route: 048
  4. GINKGO BILOBA [Concomitant]
     Route: 048

REACTIONS (5)
  - BLOOD CHOLESTEROL INCREASED [None]
  - DENGUE FEVER [None]
  - NAUSEA [None]
  - PLATELET COUNT DECREASED [None]
  - URINARY TRACT INFECTION [None]
